FAERS Safety Report 6739423-4 (Version None)
Quarter: 2010Q2

REPORT INFORMATION
  Report Type: 
  Country: None (occurrence: None)
  Receive Date: 20100525
  Receipt Date: 20100518
  Transmission Date: 20101027
  Serious: Yes (Death, Other)
  Sender: FDA-Public Use
  Company Number: GB-GENZYME-THYM-1001387

PATIENT
  Sex: Male

DRUGS (14)
  1. THYMOGLOBULIN [Suspect]
     Indication: APLASTIC ANAEMIA
     Dosage: 350 MG, QD
     Route: 042
     Dates: start: 20080805, end: 20080809
  2. CYCLOSPORINE [Concomitant]
     Indication: APLASTIC ANAEMIA
     Dosage: 100 MG, QD
     Dates: start: 20080805
  3. TEICOPLANIN [Concomitant]
     Indication: DRUG USE FOR UNKNOWN INDICATION
  4. MEROPENEM [Concomitant]
     Indication: DRUG USE FOR UNKNOWN INDICATION
  5. CASPOFUNGIN ACETATE [Concomitant]
     Indication: DRUG USE FOR UNKNOWN INDICATION
  6. CALCIUM ACETATE [Concomitant]
     Indication: DRUG USE FOR UNKNOWN INDICATION
  7. ACYCLOVIR SODIUM [Concomitant]
     Indication: DRUG USE FOR UNKNOWN INDICATION
  8. NYSTATIN [Concomitant]
     Indication: DRUG USE FOR UNKNOWN INDICATION
  9. LOTRIMOXAZOLE [Concomitant]
     Indication: DRUG USE FOR UNKNOWN INDICATION
  10. OMEPRAZOLE [Concomitant]
     Indication: DRUG USE FOR UNKNOWN INDICATION
  11. CALOGEN [Concomitant]
     Indication: DRUG USE FOR UNKNOWN INDICATION
  12. FORTISIP [Concomitant]
     Indication: DRUG USE FOR UNKNOWN INDICATION
  13. TRAMADOL HCL [Concomitant]
     Indication: DRUG USE FOR UNKNOWN INDICATION
  14. AMPHOTERICIN B [Concomitant]
     Indication: DRUG USE FOR UNKNOWN INDICATION

REACTIONS (6)
  - LIVER ABSCESS [None]
  - PULMONARY HAEMORRHAGE [None]
  - PULMONARY OEDEMA [None]
  - RENAL FAILURE CHRONIC [None]
  - STAPHYLOCOCCAL INFECTION [None]
  - VOCAL CORD PARESIS [None]
